FAERS Safety Report 6649008-6 (Version None)
Quarter: 2010Q1

REPORT INFORMATION
  Report Type: 
  Country: None (occurrence: None)
  Receive Date: 20100324
  Receipt Date: 20100319
  Transmission Date: 20100710
  Serious: Yes (Other)
  Sender: FDA-Public Use
  Company Number: US-MERCK-1003USA03097

PATIENT
  Age: 75 Year
  Sex: Female

DRUGS (1)
  1. FOSAMAX [Suspect]
     Indication: OSTEOPOROSIS
     Route: 048
     Dates: start: 20040101

REACTIONS (12)
  - BONE PAIN [None]
  - CATARACT [None]
  - EYE PAIN [None]
  - EYE PRURITUS [None]
  - FAECES DISCOLOURED [None]
  - HAEMATOCHEZIA [None]
  - LIP SWELLING [None]
  - MYALGIA [None]
  - OEDEMA PERIPHERAL [None]
  - PAIN [None]
  - PRURITUS GENERALISED [None]
  - SWELLING FACE [None]
